FAERS Safety Report 13354222 (Version 2)
Quarter: 2017Q3

REPORT INFORMATION
  Report Type: Report from Study
  Country: US (occurrence: US)
  Receive Date: 20170321
  Receipt Date: 20170718
  Transmission Date: 20171127
  Serious: Yes (Hospitalization)
  Sender: FDA-Public Use
  Company Number: PHEH2017US008018

PATIENT
  Age: 62 Year
  Sex: Female
  Weight: 67.12 kg

DRUGS (1)
  1. GILENYA [Suspect]
     Active Substance: FINGOLIMOD HYDROCHLORIDE
     Indication: MULTIPLE SCLEROSIS
     Dosage: 0.5 MG, QD
     Route: 048
     Dates: start: 20140618

REACTIONS (2)
  - Cerebrovascular accident [Unknown]
  - Weight increased [Unknown]

NARRATIVE: CASE EVENT DATE: 20160919
